FAERS Safety Report 17136505 (Version 1)
Quarter: 2019Q4

REPORT INFORMATION
  Report Type: Spontaneous
  Country: US (occurrence: US)
  Receive Date: 20191210
  Receipt Date: 20191210
  Transmission Date: 20200122
  Serious: No
  Sender: FDA-Public Use
  Company Number: US-SA-2019SA336912

PATIENT
  Age: 79 Year
  Sex: Female

DRUGS (1)
  1. DUPIXENT [Suspect]
     Active Substance: DUPILUMAB
     Indication: NASAL POLYPS
     Dosage: 300 MG, QOW
     Route: 058
     Dates: start: 20191107

REACTIONS (5)
  - Diarrhoea [Unknown]
  - Pruritus [Unknown]
  - Feeling abnormal [Unknown]
  - Stomach mass [Unknown]
  - Pain [Unknown]

NARRATIVE: CASE EVENT DATE: 2019
